FAERS Safety Report 24414177 (Version 2)
Quarter: 2024Q4

REPORT INFORMATION
  Report Type: Spontaneous
  Country: US (occurrence: US)
  Receive Date: 20241008
  Receipt Date: 20241122
  Transmission Date: 20250114
  Serious: No
  Sender: BOEHRINGER INGELHEIM
  Company Number: US-Komodo Health-a23aa000003aIfqAAE

PATIENT
  Age: 67 Year
  Sex: Female

DRUGS (2)
  1. STIOLTO RESPIMAT [Suspect]
     Active Substance: OLODATEROL HYDROCHLORIDE\TIOTROPIUM BROMIDE MONOHYDRATE
     Indication: Chronic obstructive pulmonary disease
     Dosage: 1 PUFF
     Route: 055
     Dates: start: 202103
  2. Oxygen use [Concomitant]
     Indication: Product used for unknown indication
     Dates: start: 20210217

REACTIONS (1)
  - Drug ineffective [Not Recovered/Not Resolved]
